FAERS Safety Report 6598112-X (Version None)
Quarter: 2010Q1

REPORT INFORMATION
  Report Type: 
  Country: None (occurrence: None)
  Receive Date: 20100224
  Receipt Date: 20050328
  Transmission Date: 20100710
  Serious: No
  Sender: FDA-Public Use
  Company Number: US-ALLERGAN-200502819

PATIENT
  Age: 62 Year
  Sex: Male
  Weight: 76.364 kg

DRUGS (4)
  1. BOTOX [Suspect]
     Indication: HEADACHE
     Route: 030
  2. CAFERGOT [Concomitant]
     Indication: HEADACHE
     Dates: start: 20050311
  3. VERAPAMIL [Concomitant]
     Indication: HEADACHE
     Dates: start: 20050311
  4. LIPITOR [Concomitant]
     Indication: BLOOD CHOLESTEROL INCREASED
     Dates: start: 20050311

REACTIONS (4)
  - ERYTHEMA OF EYELID [None]
  - EYELID PTOSIS [None]
  - FACIAL PARESIS [None]
  - HEADACHE [None]
